FAERS Safety Report 10460228 (Version 5)
Quarter: 2015Q1

REPORT INFORMATION
  Report Type: Spontaneous
  Country: US (occurrence: US)
  Receive Date: 20140917
  Receipt Date: 20150226
  Transmission Date: 20150720
  Serious: Yes (Hospitalization)
  Sender: FDA-Public Use
  Company Number: US-ACTELION-A-US2014-104814

PATIENT
  Age: 63 Year
  Sex: Female

DRUGS (3)
  1. ASPIRIN. [Concomitant]
     Active Substance: ASPIRIN
  2. VELETRI [Suspect]
     Active Substance: EPOPROSTENOL
     Indication: PULMONARY ARTERIAL HYPERTENSION
     Dosage: 19.5 NG/KG, PER MIN
     Route: 042
     Dates: start: 20121228
  3. OPSUMIT [Suspect]
     Active Substance: MACITENTAN
     Indication: PULMONARY ARTERIAL HYPERTENSION
     Dosage: 10 MG, UNK
     Route: 048
     Dates: start: 20121228

REACTIONS (6)
  - Arrhythmia [Unknown]
  - Tachycardia [Unknown]
  - Cardiac pacemaker insertion [Unknown]
  - Cardiac disorder [Unknown]
  - Heart rate decreased [Unknown]
  - Loss of consciousness [Unknown]
